FAERS Safety Report 4578862-7 (Version None)
Quarter: 2005Q1

REPORT INFORMATION
  Report Type: 
  Country: None (occurrence: None)
  Receive Date: 20050211
  Receipt Date: 20050131
  Transmission Date: 20050727
  Serious: Yes (Hospitalization)
  Sender: FDA-Public Use
  Company Number: IT-BRISTOL-MYERS SQUIBB COMPANY-12858551

PATIENT

DRUGS (4)
  1. CETUXIMAB [Suspect]
     Indication: COLORECTAL CANCER METASTATIC
     Route: 042
  2. GLIBOMET [Concomitant]
     Indication: DIABETES MELLITUS
  3. RESPICUR [Concomitant]
     Indication: BRONCHOPNEUMOPATHY
  4. OXIVENT [Concomitant]
     Indication: BRONCHOPNEUMOPATHY

REACTIONS (3)
  - BRONCHOSPASM [None]
  - HYPERSENSITIVITY [None]
  - HYPERTENSION [None]
